FAERS Safety Report 16775831 (Version 3)
Quarter: 2020Q1

REPORT INFORMATION
  Report Type: Spontaneous
  Country: US (occurrence: US)
  Receive Date: 20190905
  Receipt Date: 20200127
  Transmission Date: 20200409
  Serious: No
  Sender: FDA-Public Use
  Company Number: US-PFIZER INC-2019008321

PATIENT
  Age: 73 Year
  Sex: Female
  Weight: 102 kg

DRUGS (3)
  1. LYRICA [Suspect]
     Active Substance: PREGABALIN
     Indication: NEUROPATHY PERIPHERAL
  2. LYRICA [Suspect]
     Active Substance: PREGABALIN
     Indication: NEURALGIA
     Dosage: UNK, 3X/DAY [TAKE 1-2 TABLETS THREE TIMES A DAY]
  3. LYRICA [Suspect]
     Active Substance: PREGABALIN
     Indication: SPINAL PAIN
     Dosage: 100 MG, UNK (1 CAPSULE UP TO 6 TIMES A DAY)
     Route: 048

REACTIONS (3)
  - Pain [Unknown]
  - Memory impairment [Unknown]
  - Weight increased [Unknown]
